FAERS Safety Report 9192655 (Version 1)
Quarter: 2013Q1

REPORT INFORMATION
  Report Type: Spontaneous
  Country: US (occurrence: None)
  Receive Date: 20130325
  Receipt Date: 20130325
  Transmission Date: 20140127
  Serious: No
  Sender: FDA-Public Use
  Company Number: None

PATIENT
  Age: 46 Year
  Sex: Female

DRUGS (1)
  1. FORTEO [Suspect]
     Dosage: 20MCG DAILY SQ
     Route: 058
     Dates: start: 20120315, end: 20130322

REACTIONS (5)
  - Muscle spasms [None]
  - Activities of daily living impaired [None]
  - Diarrhoea [None]
  - Constipation [None]
  - Chest pain [None]
